FAERS Safety Report 20387414 (Version 1)
Quarter: 2022Q1

REPORT INFORMATION
  Report Type: Spontaneous
  Country: US (occurrence: US)
  Receive Date: 20220127
  Receipt Date: 20220127
  Transmission Date: 20220423
  Serious: No
  Sender: FDA-Public Use
  Company Number: US-ALLERGAN-2105219US

PATIENT
  Age: 66 Year
  Sex: Female

DRUGS (5)
  1. BOTOX [Suspect]
     Active Substance: ONABOTULINUMTOXINA
     Indication: Torticollis
     Dosage: 300 UNITS, SINGLE
     Route: 065
     Dates: start: 20201119, end: 20201119
  2. BOTOX [Suspect]
     Active Substance: ONABOTULINUMTOXINA
     Indication: Temporomandibular joint syndrome
  3. CLONAZEPAM [Concomitant]
     Active Substance: CLONAZEPAM
     Indication: Sleep disorder
  4. TIZANIDINE [Concomitant]
     Active Substance: TIZANIDINE
     Indication: Muscle relaxant therapy
  5. NARATRIPTAN [Concomitant]
     Active Substance: NARATRIPTAN HYDROCHLORIDE
     Indication: Headache
     Dosage: UNK, PRN

REACTIONS (4)
  - Off label use [Unknown]
  - Wrong technique in product usage process [Unknown]
  - Drug ineffective [Unknown]
  - Therapeutic response shortened [Unknown]

NARRATIVE: CASE EVENT DATE: 20201119
